FAERS Safety Report 19501381 (Version 1)
Quarter: 2021Q3

REPORT INFORMATION
  Report Type: Spontaneous
  Country: US (occurrence: US)
  Receive Date: 20210707
  Receipt Date: 20210707
  Transmission Date: 20211014
  Serious: Yes (Other)
  Sender: FDA-Public Use
  Company Number: ALC2021US004051

PATIENT
  Age: 20 Year
  Sex: Female

DRUGS (1)
  1. SYSTANE COMPLETE [Suspect]
     Active Substance: PROPYLENE GLYCOL
     Indication: DRY EYE
     Dosage: UNK
     Route: 047

REACTIONS (11)
  - Tunnel vision [Recovered/Resolved]
  - Hyperhidrosis [Recovered/Resolved]
  - Cyanosis [Recovered/Resolved]
  - Pallor [Recovered/Resolved]
  - Dizziness [Recovered/Resolved]
  - Heart rate increased [Recovered/Resolved]
  - Headache [Recovered/Resolved]
  - Peripheral coldness [Recovered/Resolved]
  - Syncope [Recovered/Resolved]
  - Visual snow syndrome [Recovered/Resolved]
  - Vision blurred [Recovered/Resolved]

NARRATIVE: CASE EVENT DATE: 20210623
